FAERS Safety Report 6841318-2 (Version None)
Quarter: 2010Q3

REPORT INFORMATION
  Report Type: 
  Country: None (occurrence: None)
  Receive Date: 20100714
  Receipt Date: 20070703
  Transmission Date: 20110219
  Serious: Yes (Other)
  Sender: FDA-Public Use
  Company Number: US-PFIZER INC-2007054593

PATIENT
  Sex: Female
  Weight: 61.2 kg

DRUGS (11)
  1. CHANTIX [Suspect]
     Indication: SMOKING CESSATION THERAPY
     Dates: start: 20070401
  2. ZOLOFT [Concomitant]
  3. BUSPAR [Concomitant]
  4. WELLBUTRIN [Concomitant]
  5. VALIUM [Concomitant]
  6. OSCAL [Concomitant]
  7. IBANDRONATE SODIUM [Concomitant]
  8. LUNESTA [Concomitant]
  9. MONTEKULAST SODIUM [Concomitant]
  10. ALBUTEROL [Concomitant]
  11. IBUPROFEN [Concomitant]

REACTIONS (3)
  - ABDOMINAL DISCOMFORT [None]
  - HYPERTENSION [None]
  - VOMITING [None]
